FAERS Safety Report 21467328 (Version 3)
Quarter: 2022Q4

REPORT INFORMATION
  Report Type: Spontaneous
  Country: US (occurrence: US)
  Receive Date: 20221017
  Receipt Date: 20221107
  Transmission Date: 20230113
  Serious: Yes (Hospitalization)
  Sender: FDA-Public Use
  Company Number: US-SA-SAC20221014000555

PATIENT
  Age: 77 Year
  Sex: Male

DRUGS (1)
  1. DUPIXENT [Suspect]
     Active Substance: DUPILUMAB
     Dosage: 300 MG,FREQUENCY: OTHER
     Route: 058
     Dates: start: 202204

REACTIONS (2)
  - Road traffic accident [Unknown]
  - Vertigo [Unknown]

NARRATIVE: CASE EVENT DATE: 20221010
